FAERS Safety Report 9029162 (Version 3)
Quarter: 2013Q2

REPORT INFORMATION
  Report Type: Spontaneous
  Country: SE (occurrence: SE)
  Receive Date: 20130125
  Receipt Date: 20130508
  Transmission Date: 20140414
  Serious: Yes (Hospitalization)
  Sender: FDA-Public Use
  Company Number: SE-JNJFOC-20130108781

PATIENT
  Age: 50 Year
  Sex: Female

DRUGS (3)
  1. REMICADE [Suspect]
     Indication: RHEUMATOID ARTHRITIS
     Dosage: 100 MG FORMULATION. TREATMENT PERIOD: 4 YEARS
     Route: 042
     Dates: start: 20090224, end: 20121221
  2. METHOTREXATE [Concomitant]
     Route: 065
  3. SALAZOPYRIN [Concomitant]
     Route: 065

REACTIONS (1)
  - Breast cancer female [Unknown]
